FAERS Safety Report 13894826 (Version 1)
Quarter: 2017Q3

REPORT INFORMATION
  Report Type: Spontaneous
  Country: US (occurrence: US)
  Receive Date: 20170817
  Receipt Date: 20170817
  Transmission Date: 20171127
  Serious: Yes (Other)
  Sender: FDA-Public Use
  Company Number: None

PATIENT
  Age: 57 Year
  Sex: Female
  Weight: 60.75 kg

DRUGS (1)
  1. CUVITRU [Suspect]
     Active Substance: HUMAN IMMUNOGLOBULIN G
     Indication: IMMUNODEFICIENCY COMMON VARIABLE
     Dosage: ?          OTHER FREQUENCY:QWK;?
     Route: 058
     Dates: start: 20170501, end: 20170817

REACTIONS (3)
  - Diarrhoea [None]
  - Muscle spasms [None]
  - Abdominal distension [None]

NARRATIVE: CASE EVENT DATE: 20170808
